FAERS Safety Report 5794386-3 (Version None)
Quarter: 2008Q2

REPORT INFORMATION
  Report Type: 
  Country: None (occurrence: None)
  Receive Date: 20080625
  Receipt Date: 20080617
  Transmission Date: 20081010
  Serious: Yes (Death)
  Sender: FDA-Public Use
  Company Number: 2008AL005380

PATIENT
  Age: 69 Year
  Sex: Male

DRUGS (6)
  1. DIGOXIN  (AMIDE) [Suspect]
     Dosage: 0.125MG DAILY PO
     Route: 048
  2. ATENOLOL [Concomitant]
  3. ALLEGRA [Concomitant]
  4. IRON SUPPLEMENT [Concomitant]
  5. HUMULIN R [Concomitant]
  6. ALAMEDA [Concomitant]

REACTIONS (1)
  - DEATH [None]
